FAERS Safety Report 7505207-2 (Version None)
Quarter: 2011Q2

REPORT INFORMATION
  Report Type: 
  Country: None (occurrence: None)
  Receive Date: 20110526
  Receipt Date: 20110513
  Transmission Date: 20111010
  Serious: Yes (Other)
  Sender: FDA-Public Use
  Company Number: US-JNJFOC-20110508746

PATIENT
  Sex: Female
  Weight: 78.02 kg

DRUGS (2)
  1. DURAGESIC-100 [Suspect]
     Indication: PAIN
     Dosage: 100UG/HR PLUS 100UG/HR (NDC: 50458-094-05)
     Route: 062
     Dates: end: 20110401
  2. FENTANYL-100 [Suspect]
     Indication: PAIN
     Dosage: 100UG/HR PLUS 100UG/HR
     Route: 062
     Dates: start: 20110401

REACTIONS (9)
  - SOCIAL PROBLEM [None]
  - DRUG INEFFECTIVE [None]
  - DETOXIFICATION [None]
  - PAIN IN EXTREMITY [None]
  - NIGHT SWEATS [None]
  - MALAISE [None]
  - DIARRHOEA [None]
  - CHILLS [None]
  - NAUSEA [None]
